FAERS Safety Report 7564709-3 (Version None)
Quarter: 2011Q2

REPORT INFORMATION
  Report Type: 
  Country: None (occurrence: None)
  Receive Date: 20110622
  Receipt Date: 20101217
  Transmission Date: 20111010
  Serious: Yes (Other)
  Sender: FDA-Public Use
  Company Number: US-MYLANLABS-2010S1017268

PATIENT
  Age: 32 Year
  Sex: Female

DRUGS (5)
  1. LITHIUM CARBONATE [Concomitant]
     Route: 048
  2. LOXAPINE HCL [Concomitant]
     Route: 048
  3. CLOZAPINE [Suspect]
     Route: 048
     Dates: start: 20101001
  4. CLONAZEPAM [Concomitant]
     Route: 048
  5. CLOZAPINE [Suspect]
     Indication: SCHIZOPHRENIA
     Route: 048
     Dates: end: 20100901

REACTIONS (2)
  - GRANULOCYTOPENIA [None]
  - LEUKOPENIA [None]
